FAERS Safety Report 4372285-1 (Version None)
Quarter: 2004Q3

REPORT INFORMATION
  Report Type: 
  Country: None (occurrence: None)
  Receive Date: 20040602
  Receipt Date: 20040524
  Transmission Date: 20050211
  Serious: Yes (Hospitalization)
  Sender: FDA-Public Use
  Company Number: 2004215282FR

PATIENT
  Age: 57 Year
  Sex: Male

DRUGS (14)
  1. ALDACTONE [Suspect]
     Dosage: ORAL
     Route: 048
     Dates: start: 20040210
  2. OFLOXACIN [Suspect]
     Dosage: 400 MG, QD, ORAL
     Route: 048
     Dates: start: 20031227
  3. TARGOCID [Suspect]
     Dosage: IV
     Route: 042
     Dates: start: 20031227
  4. NEXIUM [Suspect]
     Dosage: 1 DF, QD, ORAL
     Route: 048
     Dates: start: 20040207, end: 20040401
  5. ORGARAN [Suspect]
     Dosage: SUBCUTANEOUS
     Route: 058
     Dates: start: 20040308, end: 20040319
  6. INSULIN [Concomitant]
  7. PRAVASTATIN SODIUM [Concomitant]
  8. PROPRANOLOL [Concomitant]
  9. TARDYFERON [Concomitant]
  10. RAMIPRIL [Concomitant]
  11. LASILIX [Concomitant]
  12. PREVISCAN (FLUIDIONE) [Concomitant]
  13. THIAMINE HCL [Concomitant]
  14. VITAMIN B6 [Concomitant]

REACTIONS (2)
  - CONDITION AGGRAVATED [None]
  - THROMBOCYTOPENIA [None]
